FAERS Safety Report 7028871-3 (Version None)
Quarter: 2010Q4

REPORT INFORMATION
  Report Type: 
  Country: None (occurrence: None)
  Receive Date: 20101005
  Receipt Date: 20100930
  Transmission Date: 20110411
  Serious: Yes (Hospitalization)
  Sender: FDA-Public Use
  Company Number: FR-BRISTOL-MYERS SQUIBB COMPANY-15315427

PATIENT
  Age: 63 Year
  Sex: Male

DRUGS (12)
  1. IRBESARTAN [Suspect]
     Dates: end: 20100101
  2. AMIODARONE [Suspect]
     Dosage: TAKEN AS CONMED ALSO JUN10.
     Dates: end: 20100301
  3. KARDEGIC [Suspect]
     Dates: end: 20100101
  4. LEVOTHYROXINE SODIUM [Concomitant]
  5. ACTONEL [Concomitant]
  6. PREDNISONE [Concomitant]
  7. CALCIUM [Concomitant]
  8. MOPRAL [Concomitant]
  9. SINTROM [Concomitant]
  10. RAMIPRIL [Concomitant]
  11. LASIX [Concomitant]
  12. BISOPROLOL [Concomitant]
     Dates: start: 20100601

REACTIONS (5)
  - CARDIAC FAILURE [None]
  - CELL DEATH [None]
  - CHOLESTASIS [None]
  - DYSPNOEA [None]
  - INTERSTITIAL LUNG DISEASE [None]
